FAERS Safety Report 10192370 (Version 1)
Quarter: 2014Q2

REPORT INFORMATION
  Report Type: Report from Study
  Country: DE (occurrence: DE)
  Receive Date: 20140523
  Receipt Date: 20140523
  Transmission Date: 20141212
  Serious: Yes (Hospitalization)
  Sender: FDA-Public Use
  Company Number: DE-JNJFOC-20140511090

PATIENT
  Age: 82 Year
  Sex: Female
  Weight: 52 kg

DRUGS (12)
  1. XARELTO [Suspect]
     Indication: ATRIAL FIBRILLATION
     Route: 048
     Dates: start: 20130606, end: 20140419
  2. XARELTO [Suspect]
     Indication: ATRIAL FIBRILLATION
     Route: 048
     Dates: start: 20130502, end: 20130601
  3. XARELTO [Suspect]
     Indication: CEREBROVASCULAR ACCIDENT PROPHYLAXIS
     Route: 048
     Dates: start: 20130502, end: 20130601
  4. XARELTO [Suspect]
     Indication: CEREBROVASCULAR ACCIDENT PROPHYLAXIS
     Route: 048
     Dates: start: 20130606, end: 20140419
  5. PROTAPHANE [Concomitant]
     Route: 065
     Dates: start: 2002
  6. PANTOPRAZOLE [Concomitant]
     Route: 065
     Dates: start: 20140505
  7. HYDROCHLOROTHIAZIDE [Concomitant]
     Route: 065
     Dates: start: 20140107, end: 20140320
  8. MAGNESIUM [Concomitant]
     Route: 065
     Dates: start: 20140107
  9. TORASEMID [Concomitant]
     Route: 065
     Dates: start: 20140321, end: 20140504
  10. TORASEMID [Concomitant]
     Route: 065
     Dates: start: 20140505
  11. ACTRAPID [Concomitant]
     Route: 065
     Dates: start: 2002
  12. METOPROLOL [Concomitant]
     Route: 065
     Dates: start: 20130502

REACTIONS (2)
  - Discomfort [Recovered/Resolved]
  - Lividity [Recovered/Resolved]
